FAERS Safety Report 23672210 (Version 1)
Quarter: 2024Q1

REPORT INFORMATION
  Report Type: Spontaneous
  Country: US (occurrence: US)
  Receive Date: 20240326
  Receipt Date: 20240326
  Transmission Date: 20240409
  Serious: No
  Sender: FDA-Public Use
  Company Number: US-SA-SAC20240321000618

PATIENT
  Sex: Male

DRUGS (1)
  1. TZIELD [Suspect]
     Active Substance: TEPLIZUMAB-MZWV
     Dosage: UNK
     Route: 065

REACTIONS (4)
  - Injection site reaction [Unknown]
  - Fatigue [Unknown]
  - Nausea [Unknown]
  - Headache [Unknown]
